FAERS Safety Report 6059746-4 (Version None)
Quarter: 2009Q1

REPORT INFORMATION
  Report Type: 
  Country: None (occurrence: None)
  Receive Date: 20090130
  Receipt Date: 20090119
  Transmission Date: 20090719
  Serious: Yes (Other)
  Sender: FDA-Public Use
  Company Number: US-BAXTER-2009BH001038

PATIENT

DRUGS (1)
  1. TISSEEL VH/SD KIT LYOPHILIZED [Suspect]
     Indication: DRUG USE FOR UNKNOWN INDICATION
     Route: 061

REACTIONS (2)
  - AIR EMBOLISM [None]
  - DRUG ADMINISTRATION ERROR [None]
